FAERS Safety Report 16091538 (Version 1)
Quarter: 2019Q1

REPORT INFORMATION
  Report Type: Spontaneous
  Country: ES (occurrence: ES)
  Receive Date: 20190319
  Receipt Date: 20190319
  Transmission Date: 20190418
  Serious: Yes (Death, Other)
  Sender: FDA-Public Use
  Company Number: ES-BAYER-2019-022133

PATIENT
  Age: 69 Year
  Sex: Male

DRUGS (3)
  1. ZOLEDRONIC ACID [Concomitant]
     Active Substance: ZOLEDRONIC ACID
  2. NEXAVAR [Suspect]
     Active Substance: SORAFENIB
     Dosage: 400 MG, BID
     Route: 048
     Dates: start: 20130301
  3. NEXAVAR [Suspect]
     Active Substance: SORAFENIB
     Dosage: 200 MG, BID
     Route: 048
     Dates: end: 201308

REACTIONS (9)
  - Pruritus generalised [None]
  - Diarrhoea [Recovering/Resolving]
  - Metastases to lung [None]
  - Mucosal inflammation [Recovered/Resolved]
  - Asthenia [None]
  - Death [Fatal]
  - Headache [None]
  - Metastases to bone [None]
  - Pyrexia [None]

NARRATIVE: CASE EVENT DATE: 2013
